FAERS Safety Report 7640989-0 (Version None)
Quarter: 2011Q3

REPORT INFORMATION
  Report Type: 
  Country: None (occurrence: None)
  Receive Date: 20110728
  Receipt Date: 20110726
  Transmission Date: 20111222
  Serious: Yes (Hospitalization)
  Sender: FDA-Public Use
  Company Number: FR-SANOFI-AVENTIS-2011SA038458

PATIENT
  Age: 69 Year
  Sex: Female

DRUGS (13)
  1. ARIMIDEX [Concomitant]
  2. LASIX [Suspect]
     Route: 042
     Dates: start: 20110322, end: 20110322
  3. LOVENOX [Suspect]
     Route: 058
     Dates: end: 20110414
  4. IPRATROPIUM BROMIDE [Concomitant]
  5. NEBIVOLOL [Concomitant]
     Route: 048
     Dates: start: 20110327, end: 20110415
  6. PLAVIX [Suspect]
     Route: 048
     Dates: end: 20110415
  7. LASIX [Suspect]
     Route: 048
     Dates: start: 20110211, end: 20110412
  8. RAMIPRIL [Suspect]
     Dosage: 5 MG IN THE MORNING AND 2.5 MG IN THE EVENING
     Route: 048
     Dates: start: 20110211, end: 20110414
  9. OXEOL [Concomitant]
     Dates: start: 20110322, end: 20110331
  10. CRESTOR [Suspect]
     Route: 048
     Dates: start: 20110303, end: 20110415
  11. ALLOPURINOL [Suspect]
     Route: 048
     Dates: end: 20110414
  12. ESOMEPRAZOLE MAGNESIUM [Concomitant]
  13. SPIRIVA [Concomitant]

REACTIONS (8)
  - STEVENS-JOHNSON SYNDROME [None]
  - RASH MACULAR [None]
  - MUCOSAL INFLAMMATION [None]
  - RASH ERYTHEMATOUS [None]
  - PRURITUS GENERALISED [None]
  - NIKOLSKY'S SIGN [None]
  - SKIN EXFOLIATION [None]
  - CONJUNCTIVITIS [None]
